FAERS Safety Report 12657987 (Version 2)
Quarter: 2016Q3

REPORT INFORMATION
  Report Type: Spontaneous
  Country: US (occurrence: US)
  Receive Date: 20160817
  Receipt Date: 20160927
  Transmission Date: 20161109
  Serious: No
  Sender: FDA-Public Use
  Company Number: PHEH2016US020609

PATIENT
  Age: 6 Year
  Sex: Female

DRUGS (1)
  1. TRILEPTAL [Suspect]
     Active Substance: OXCARBAZEPINE
     Indication: SEIZURE
     Dosage: 5 ML, BID
     Route: 048
     Dates: start: 20160808

REACTIONS (1)
  - Amnesia [Recovered/Resolved]

NARRATIVE: CASE EVENT DATE: 20160808
